FAERS Safety Report 14996549 (Version 10)
Quarter: 2020Q4

REPORT INFORMATION
  Report Type: Spontaneous
  Country: CA (occurrence: CA)
  Receive Date: 20180611
  Receipt Date: 20201104
  Transmission Date: 20210113
  Serious: Yes (Hospitalization, Other)
  Sender: FDA-Public Use
  Company Number: CA-CELLTRION INC.-2018CA020505

PATIENT

DRUGS (58)
  1. INFLECTRA [Suspect]
     Active Substance: INFLIXIMAB-DYYB
     Indication: COLITIS ULCERATIVE
     Dosage: 5 MG/KG, 0, 2, 6, THEN EVERY 8 WEEKS
     Route: 042
     Dates: start: 20180518, end: 20180518
  2. INFLECTRA [Suspect]
     Active Substance: INFLIXIMAB-DYYB
     Dosage: 5 MG/KG, 0, 2, 6 WEEKS, THEN EVERY 8 WEEKS
     Route: 042
     Dates: start: 20200514, end: 20200514
  3. SPIRONOLACTONE. [Concomitant]
     Active Substance: SPIRONOLACTONE
     Dosage: 25 MG, 1X/DAY
     Route: 048
  4. PANTOPRAZOLE [Concomitant]
     Active Substance: PANTOPRAZOLE
     Dosage: 40 MG, 1X/DAY
     Route: 048
  5. LACTIBIANE [Concomitant]
     Dosage: 1 DF(SACHET), AS NEEDED(OD)
     Route: 065
  6. COLYTE [Concomitant]
     Active Substance: POLYETHYLENE GLYCOL 3350\POTASSIUM CHLORIDE\SODIUM BICARBONATE\SODIUM CHLORIDE\SODIUM SULFATE
     Dosage: AS DIRECTED BY PHARMACIST
     Route: 065
  7. MOMETASONE [Concomitant]
     Active Substance: MOMETASONE
     Dosage: 50 UG, 2X/DAY(NASAL PUFFS IN EACH NOSTRIL PRN)
     Route: 045
  8. MOXIFLOXACIN. [Concomitant]
     Active Substance: MOXIFLOXACIN
     Dosage: 400 MG, 1X/DAY FOR 10 DAYS
     Route: 048
  9. CEFPROZIL. [Concomitant]
     Active Substance: CEFPROZIL
     Dosage: 500 MG, UNK(1 TABLET BID FOR 12H FOR 10 DAYS)
     Route: 048
  10. CIPROFLOXACIN. [Concomitant]
     Active Substance: CIPROFLOXACIN
     Dosage: 250 MG, 2X/DAY FOR 7 DAYS
     Route: 048
  11. INFLECTRA [Suspect]
     Active Substance: INFLIXIMAB-DYYB
     Dosage: 5 MG/KG, 0, 2, 6, THEN EVERY 8 WEEKS
     Route: 042
     Dates: start: 20180710, end: 20180710
  12. CELEBREX [Concomitant]
     Active Substance: CELECOXIB
     Indication: PAIN
     Dosage: UNK
  13. RISEDRONATE [Concomitant]
     Active Substance: RISEDRONATE SODIUM
     Indication: OSTEOPOROSIS
     Dosage: 35 MG, WEEKLY
     Route: 048
  14. DICYCLOMINE [Concomitant]
     Active Substance: DICYCLOMINE HYDROCHLORIDE
     Indication: PAIN
     Dosage: 20 MG, AS NEEDED(Q4-6H)
     Route: 048
  15. TOMA [Concomitant]
     Indication: NAUSEA
     Dosage: AT 50-100MG Q (EVERY) 4-6 HOURS
     Route: 048
  16. EMCORT [Concomitant]
     Indication: HAEMORRHOIDS
     Dosage: 0.5% RECTAL CREAM TOPICALLY APPLY ON HEMORRHOIDS THREE TIMES DAILY AFTER EACH BOWEL MOVEMENT
     Route: 061
  17. INFLECTRA [Suspect]
     Active Substance: INFLIXIMAB-DYYB
     Dosage: 5 MG/KG, 0, 2, 6, THEN EVERY 8 WEEKS
     Route: 042
     Dates: start: 20180905, end: 20180905
  18. INFLECTRA [Suspect]
     Active Substance: INFLIXIMAB-DYYB
     Dosage: 5 MG/KG, 0, 2, 6, THEN EVERY 8 WEEKS
     Route: 042
     Dates: start: 20181031, end: 20181031
  19. CELEBREX [Concomitant]
     Active Substance: CELECOXIB
     Indication: SWELLING
     Dosage: 200 MG, 2X/DAY FOR 10 DAYS
     Route: 048
  20. PREDNISONE. [Concomitant]
     Active Substance: PREDNISONE
     Dosage: 50 MG OD 81XDAY) FOR 5 DAYS, THEN 1/2 TABLET FOR 5 DAYS
     Route: 048
  21. CALCIUM + VITAMIN D [Concomitant]
     Active Substance: CALCIUM\VITAMIN D
     Dosage: 1 DF, 2X/DAY (500 MG/400 UI TABLET)
     Route: 048
  22. SALBUTAMOL HFA [Concomitant]
     Active Substance: ALBUTEROL
     Indication: ASTHMA
     Dosage: 2 DF, 4X/DAY (100MCGDOSE) AS NEEDED
     Route: 055
  23. AMOXI-CLAV [Concomitant]
     Active Substance: AMOXICILLIN\CLAVULANATE POTASSIUM
     Dosage: 1 DF, 2X/DAY FOR 10 DAYS(875MG+125MG)
     Route: 048
  24. VOLTAREN EMULGEL [Concomitant]
     Active Substance: DICLOFENAC DIETHYLAMINE
     Indication: PAIN
     Dosage: 1.16% GEL APPLY LOCALLY 3-4 TIMES A DAY AS NEEDED
     Route: 061
  25. INFLECTRA [Suspect]
     Active Substance: INFLIXIMAB-DYYB
     Dosage: 5 MG/KG, 0, 2, 6, THEN EVERY 8 WEEKS
     Route: 042
     Dates: start: 20191125, end: 20191125
  26. INFLECTRA [Suspect]
     Active Substance: INFLIXIMAB-DYYB
     Dosage: 5 MG/KG, 0, 2, 6, THEN EVERY 8 WEEKS
     Route: 042
     Dates: start: 20201027
  27. ASPIRIN [ACETYLSALICYLIC ACID] [Concomitant]
     Active Substance: ASPIRIN
     Indication: BLOOD DISORDER
     Dosage: 80 MG, 1X/DAY
     Route: 048
  28. ATORVASTATIN [Concomitant]
     Active Substance: ATORVASTATIN
     Dosage: 10 MG, BED TIME
     Route: 048
  29. OXAZEPAM. [Concomitant]
     Active Substance: OXAZEPAM
     Indication: INSOMNIA
     Dosage: 15 MG, BED TIME
     Route: 048
  30. TUDORZA GENUAIR [Concomitant]
     Active Substance: ACLIDINIUM BROMIDE
     Dosage: 1 DF, 2X/DAY
     Route: 055
  31. OCUVITE [Concomitant]
     Active Substance: VITAMINS
     Dosage: 1 DF, 2X/DAY
     Route: 048
  32. NITRO SL SPRAY [Concomitant]
     Dosage: 0.4MG - 1PUFF SUBLINGUAL IF ANGINA AND REPEAT EVERY 5 MINUTES AS NEEDED
     Route: 060
  33. CLARITHROMYCIN XL [Concomitant]
     Active Substance: CLARITHROMYCIN
     Dosage: 500MG 2 TABLETS AFTER MEAL FOR 10 DAYS
     Route: 048
  34. INFLECTRA [Suspect]
     Active Substance: INFLIXIMAB-DYYB
     Dosage: 5 MG/KG, 0, 2, 6, THEN EVERY 8 WEEKS
     Route: 042
     Dates: start: 20190611, end: 20190611
  35. INFLECTRA [Suspect]
     Active Substance: INFLIXIMAB-DYYB
     Dosage: 5 MG/KG, 0, 2, 6, THEN EVERY 8 WEEKS
     Route: 042
     Dates: start: 20191004, end: 20191004
  36. PRESERVISION AREDS 2 [Concomitant]
     Active Substance: MINERALS\VITAMINS
     Dosage: 2 DF, 1X/DAY
     Route: 048
  37. DICYCLOMINE [Concomitant]
     Active Substance: DICYCLOMINE HYDROCHLORIDE
     Indication: MUSCLE SPASMS
     Dosage: UNK
  38. CLOTRIMADERM [Concomitant]
     Active Substance: CLOTRIMAZOLE
     Indication: ANTIFUNGAL TREATMENT
     Dosage: APPLY LOCALLY , 2X/DAY ON VULVA FOR 7 DAYS
     Route: 061
  39. NASONEX [Concomitant]
     Active Substance: MOMETASONE FUROATE
     Dosage: 2 DF, 2X/DAY IN EACH NOSTRIL
     Route: 055
  40. AVELOX [Concomitant]
     Active Substance: MOXIFLOXACIN HYDROCHLORIDE
     Dosage: 400 MG, 1X/DAY FOR 10 DAYS
     Route: 048
  41. DILTIAZEM T [Concomitant]
     Indication: BLOOD PRESSURE MEASUREMENT
     Dosage: 360 MG, 1X/DAY
     Route: 048
  42. SYMBICORT [Concomitant]
     Active Substance: BUDESONIDE\FORMOTEROL FUMARATE DIHYDRATE
     Dosage: 1 DF, 2X/DAY (6+200MCG)
     Route: 055
  43. ADVAIR HFA [Concomitant]
     Active Substance: FLUTICASONE PROPIONATE\SALMETEROL XINAFOATE
     Dosage: 2 DF, 2X/DAY
     Route: 055
  44. CEFPROZIL. [Concomitant]
     Active Substance: CEFPROZIL
     Dosage: 1250 DF, 2X/DAY FOR 10 DAYS
     Route: 048
  45. INFLECTRA [Suspect]
     Active Substance: INFLIXIMAB-DYYB
     Dosage: 5 MG/KG, 0, 2, 6, THEN EVERY 8 WEEKS
     Route: 042
     Dates: start: 20180611, end: 20180611
  46. INFLECTRA [Suspect]
     Active Substance: INFLIXIMAB-DYYB
     Dosage: 5 MG/KG, 0, 2, 6, THEN EVERY 8 WEEKS
     Route: 042
     Dates: start: 20190416, end: 20190416
  47. PREDNISONE. [Concomitant]
     Active Substance: PREDNISONE
     Dosage: 40 MG, 5 DAYS THEN USE CALENDAR
     Route: 048
  48. LEVOFLOXACIN. [Concomitant]
     Active Substance: LEVOFLOXACIN
     Dosage: 500 MG, 1X/DAY FOR 7 DAYS
     Route: 048
  49. FLOVENT HFA [Concomitant]
     Active Substance: FLUTICASONE PROPIONATE
     Dosage: 2 DF(125MCG), UNK
     Route: 048
  50. ADVAIR HFA [Concomitant]
     Active Substance: FLUTICASONE PROPIONATE\SALMETEROL XINAFOATE
     Dosage: 1 DF, 2X/DAY
     Route: 055
  51. CIPRO XL [Concomitant]
     Active Substance: CIPROFLOXACIN\CIPROFLOXACIN HYDROCHLORIDE
     Dosage: 500 MG, 1X/DAY FOR 7 DAYS
     Route: 048
  52. AVAMYS [Concomitant]
     Active Substance: FLUTICASONE FUROATE
     Dosage: 2 DF, AS NEEDED (I EACH NOSTRIL 1XDAY AS NEEDED)
     Route: 045
  53. BISACODYL. [Concomitant]
     Active Substance: BISACODYL
     Dosage: 10 MG, BEFORE EXAM(TABLETS HS)
     Route: 048
  54. COLYTE [Concomitant]
     Active Substance: POLYETHYLENE GLYCOL 3350\POTASSIUM CHLORIDE\SODIUM BICARBONATE\SODIUM CHLORIDE\SODIUM SULFATE
     Dosage: AS DIRECTED BY PHARMACIST
     Route: 048
  55. MOMETASONE [Concomitant]
     Active Substance: MOMETASONE
     Dosage: 5 DF, 2X/DAY (AS NEEDED)
     Route: 045
  56. PROBACLAC [Concomitant]
     Dosage: 2 DF, 2X/DAY
     Route: 048
  57. ALVESCO [Concomitant]
     Active Substance: CICLESONIDE
     Dosage: 2 DF, 1X/DAY
     Route: 055
  58. PYRIDIUM [Concomitant]
     Active Substance: PHENAZOPYRIDINE
     Dosage: 100 MG, 2X/DAY AS NEEDED
     Route: 048

REACTIONS (18)
  - Condition aggravated [Recovering/Resolving]
  - Muscle spasms [Unknown]
  - Ageusia [Not Recovered/Not Resolved]
  - Feeling abnormal [Not Recovered/Not Resolved]
  - Blood pressure decreased [Unknown]
  - Sinusitis [Recovered/Resolved]
  - Vomiting [Unknown]
  - Ear discomfort [Not Recovered/Not Resolved]
  - Off label use [Unknown]
  - Intentional product use issue [Unknown]
  - Aphonia [Unknown]
  - Musculoskeletal chest pain [Not Recovered/Not Resolved]
  - Pneumonia [Recovered/Resolved]
  - Pain in extremity [Unknown]
  - Dizziness [Unknown]
  - Cough [Not Recovered/Not Resolved]
  - Contusion [Unknown]
  - Alopecia [Unknown]

NARRATIVE: CASE EVENT DATE: 201805
